FAERS Safety Report 8791002 (Version 1)
Quarter: 2012Q4

REPORT INFORMATION
  Report Type: Spontaneous
  Country: MX (occurrence: None)
  Receive Date: 20120907
  Receipt Date: 20120907
  Transmission Date: 20130627
  Serious: Yes (Other)
  Sender: FDA-Public Use
  Company Number: ENTC2012-0398

PATIENT
  Age: 72 Year
  Sex: Female

DRUGS (1)
  1. STALEVO [Suspect]
     Dates: start: 20120816

REACTIONS (1)
  - Blood triglycerides increased [None]
